FAERS Safety Report 21076142 (Version 1)
Quarter: 2022Q3

REPORT INFORMATION
  Report Type: Spontaneous
  Country: CN (occurrence: CN)
  Receive Date: 20220713
  Receipt Date: 20220713
  Transmission Date: 20221027
  Serious: Yes (Other)
  Sender: FDA-Public Use
  Company Number: CN-PFIZER INC-PV202200020523

PATIENT
  Age: 35 Year
  Sex: Female
  Weight: 47 kg

DRUGS (1)
  1. CELEBREX [Suspect]
     Active Substance: CELECOXIB
     Indication: Symptomatic treatment
     Dosage: 0.2 G, 2X/DAY
     Route: 048
     Dates: start: 20220619, end: 20220622

REACTIONS (2)
  - Hepatic enzyme increased [Recovering/Resolving]
  - Liver injury [Recovering/Resolving]

NARRATIVE: CASE EVENT DATE: 20220622
